FAERS Safety Report 14303622 (Version 1)
Quarter: 2017Q4

REPORT INFORMATION
  Report Type: Spontaneous
  Country: US (occurrence: US)
  Receive Date: 20171219
  Receipt Date: 20171219
  Transmission Date: 20180321
  Serious: Yes (Death)
  Sender: FDA-Public Use
  Company Number: None

PATIENT
  Sex: Male

DRUGS (4)
  1. SYNTHROID [Concomitant]
     Active Substance: LEVOTHYROXINE SODIUM
  2. LONSURF [Suspect]
     Active Substance: TIPIRACIL HYDROCHLORIDE\TRIFLURIDINE
     Indication: COLON CANCER
     Dosage: 15-6.14 MG BID PO
     Route: 048
     Dates: start: 20171207, end: 2017
  3. DIOVAN [Concomitant]
     Active Substance: VALSARTAN
  4. LONSURF [Suspect]
     Active Substance: TIPIRACIL HYDROCHLORIDE\TRIFLURIDINE
     Indication: COLON CANCER
     Dosage: 40-16.38 MG BID PO
     Route: 048
     Dates: start: 20171207, end: 2017

REACTIONS (1)
  - Death [None]

NARRATIVE: CASE EVENT DATE: 2017
